FAERS Safety Report 20785799 (Version 1)
Quarter: 2022Q2

REPORT INFORMATION
  Report Type: Spontaneous
  Country: US (occurrence: None)
  Receive Date: 20220504
  Receipt Date: 20220504
  Transmission Date: 20220721
  Serious: No
  Sender: FDA-Public Use
  Company Number: US-ROCHE-2885009

PATIENT
  Sex: Female
  Weight: 72.640 kg

DRUGS (1)
  1. OCREVUS [Suspect]
     Active Substance: OCRELIZUMAB
     Indication: Relapsing multiple sclerosis
     Dosage: FIRST TWO 300 MG INFUSIONS, SEPARATED BY TWO WEEKS ;ONGOING: YES
     Route: 042
     Dates: start: 20210502

REACTIONS (6)
  - Pyrexia [Unknown]
  - Rhinorrhoea [Unknown]
  - Cough [Unknown]
  - Pain [Unknown]
  - Fatigue [Unknown]
  - Oropharyngeal pain [Unknown]
